FAERS Safety Report 21021654 (Version 1)
Quarter: 2022Q2

REPORT INFORMATION
  Report Type: Spontaneous
  Country: CN (occurrence: CN)
  Receive Date: 20220629
  Receipt Date: 20220629
  Transmission Date: 20220721
  Serious: Yes (Other)
  Sender: FDA-Public Use
  Company Number: None

PATIENT
  Age: 76 Year
  Sex: Male
  Weight: 60 kg

DRUGS (6)
  1. CYCLOPHOSPHAMIDE [Suspect]
     Active Substance: CYCLOPHOSPHAMIDE
     Indication: Follicular lymphoma
     Dosage: 1.2 G, QD, POWDER INJECTION (0.9% NS 100ML + CYCLOPHOSPHAMIDE 1.2G/IVGTT ST)
     Route: 041
     Dates: start: 20220606, end: 20220606
  2. SODIUM CHLORIDE [Suspect]
     Active Substance: SODIUM CHLORIDE
     Indication: Medication dilution
     Dosage: 100 ML, QD (0.9% NS 100ML + CYCLOPHOSPHAMIDE 1.2G/IVGTT ST)
     Route: 041
     Dates: start: 20220606, end: 20220606
  3. SODIUM CHLORIDE [Suspect]
     Active Substance: SODIUM CHLORIDE
     Dosage: 100 ML, QD (0.9% NS 100ML + VINCRISTINE SULFATE FOR INJECTION 2MG/IVGTT ST)
     Route: 041
     Dates: start: 20220606, end: 20220606
  4. ANHYDROUS DEXTROSE [Suspect]
     Active Substance: ANHYDROUS DEXTROSE
     Indication: Medication dilution
     Dosage: 250 ML, QD (5% GS 250ML + EPIRUBICIN HYDROCHLORIDE FOR INJECTION 70MG/IVGTT ST)
     Route: 041
     Dates: start: 20220606, end: 20220606
  5. EPIRUBICIN HYDROCHLORIDE [Suspect]
     Active Substance: EPIRUBICIN HYDROCHLORIDE
     Indication: Follicular lymphoma
     Dosage: 70 MG, QD (5% GS 250ML + EPIRUBICIN HYDROCHLORIDE FOR INJECTION 70MG/IVGTT ST)
     Route: 041
     Dates: start: 20220606, end: 20220606
  6. VINCRISTINE SULFATE [Suspect]
     Active Substance: VINCRISTINE SULFATE
     Indication: Follicular lymphoma
     Dosage: 2 MG, QD (0.9% NS 100ML + VINCRISTINE SULFATE FOR INJECTION 2MG/IVGTT ST)
     Route: 041
     Dates: start: 20220606, end: 20220606

REACTIONS (1)
  - White blood cell count decreased [Recovering/Resolving]

NARRATIVE: CASE EVENT DATE: 20220613
